FAERS Safety Report 15361039 (Version 1)
Quarter: 2018Q3

REPORT INFORMATION
  Report Type: Spontaneous
  Country: FI (occurrence: FI)
  Receive Date: 20180907
  Receipt Date: 20180907
  Transmission Date: 20181010
  Serious: Yes (Other)
  Sender: FDA-Public Use
  Company Number: FI-SA-2018SA239493

PATIENT
  Sex: Male

DRUGS (1)
  1. AUBAGIO [Suspect]
     Active Substance: TERIFLUNOMIDE
     Indication: MULTIPLE SCLEROSIS
     Dosage: UNK MG

REACTIONS (5)
  - Intervertebral disc protrusion [Unknown]
  - Paraesthesia [Unknown]
  - Nerve root injury [Unknown]
  - Vibration test abnormal [Unknown]
  - Hyporeflexia [Unknown]
